FAERS Safety Report 6037857-7 (Version None)
Quarter: 2009Q1

REPORT INFORMATION
  Report Type: 
  Country: None (occurrence: None)
  Receive Date: 20090113
  Receipt Date: 20090113
  Transmission Date: 20090719
  Serious: No
  Sender: FDA-Public Use
  Company Number: None

PATIENT
  Age: 2 Day
  Sex: Male

DRUGS (1)
  1. CALCIUM GLUCONATE [Suspect]
     Dates: start: 20080108, end: 20080108

REACTIONS (1)
  - INCORRECT DOSE ADMINISTERED [None]
